FAERS Safety Report 6821283-4 (Version None)
Quarter: 2010Q2

REPORT INFORMATION
  Report Type: 
  Country: None (occurrence: None)
  Receive Date: 20100630
  Receipt Date: 20100623
  Transmission Date: 20101027
  Serious: Yes (Hospitalization)
  Sender: FDA-Public Use
  Company Number: 8055233

PATIENT
  Sex: Male
  Weight: 92 kg

DRUGS (12)
  1. CERTOLIZUMAB PEGOL (CERTOLIZUMAB PEGOL) [Suspect]
     Indication: RHEUMATOID ARTHRITIS
     Dosage: (400 MG 1X/MONTH SUBCUTANEOUS)
     Route: 058
     Dates: start: 20031209, end: 20091130
  2. PREDNISONE [Concomitant]
  3. METHOTREXATE [Concomitant]
  4. FOLIC ACID [Concomitant]
  5. DICLOFENAC SODIUM [Concomitant]
  6. CALCIUM [Concomitant]
  7. ERGOCALCIFEROL [Concomitant]
  8. CONCOR /00802602/ [Concomitant]
  9. TRITACE [Concomitant]
  10. ANOPYRIN [Concomitant]
  11. SORTIS /01326101/ [Concomitant]
  12. HELICID /00661201/ [Concomitant]

REACTIONS (3)
  - ATELECTASIS [None]
  - HAEMOGLOBIN DECREASED [None]
  - LUNG NEOPLASM MALIGNANT [None]
